FAERS Safety Report 7085087 (Version 2)
Quarter: 2016Q1

REPORT INFORMATION
  Report Type: Report from Study
  Country: NL (occurrence: NL)
  Receive Date: 20090819
  Receipt Date: 20160317
  Transmission Date: 20160526
  Serious: Yes (Hospitalization)
  Sender: FDA-Public Use
  Company Number: NL-ROCHE-525053

PATIENT
  Age: 44 Year
  Weight: 48.5 kg

DRUGS (12)
  1. CAPECITABINE. [Suspect]
     Active Substance: CAPECITABINE
     Indication: GASTRIC CANCER
     Dosage: TWO WEEKS TREATMENT FOLLOWED BY ONE WEEK REST. AS PER PROTOCOL., LAST DOSE PRIOR TO SAE: 13-11-2007
     Route: 048
  2. PANTOPRAZOLE [Concomitant]
     Active Substance: PANTOPRAZOLE SODIUM
     Route: 048
  3. EPIRUBICIN [Suspect]
     Active Substance: EPIRUBICIN
     Indication: GASTRIC CANCER
     Dosage: GIVEN ON DAY ONE AS PER PROTOCOL, LAST DOSE PRIOR TO SAE: 13-11-2007
     Route: 042
  4. METOCLOPRAMIDE. [Concomitant]
     Active Substance: METOCLOPRAMIDE
  5. CISPLATIN. [Suspect]
     Active Substance: CISPLATIN
     Indication: GASTRIC CANCER
     Dosage: GIVEN ON DAY ONE AS PER PROTOCOL, LAST DOSE PRIOR TO SAE: 13-11-2007
     Route: 042
  6. PARACETAMOL [Concomitant]
     Active Substance: ACETAMINOPHEN
     Route: 065
  7. SLOW-K [Concomitant]
     Active Substance: POTASSIUM CHLORIDE
     Dosage: REPORTED AS 3DD.
     Route: 065
  8. DEXAMETHASONE. [Suspect]
     Active Substance: DEXAMETHASONE
     Route: 042
     Dates: start: 20071114, end: 20071116
  9. APREPITANT. [Concomitant]
     Active Substance: APREPITANT
     Dosage: DOSE RPTD AS 125 MGR2 DG/ 80 MG
     Route: 048
     Dates: start: 20071113, end: 20071115
  10. DEXAMETHASONE. [Suspect]
     Active Substance: DEXAMETHASONE
     Indication: PRODUCT USED FOR UNKNOWN INDICATION
     Route: 042
     Dates: start: 20071113, end: 20071113
  11. LACTULOSE. [Concomitant]
     Active Substance: LACTULOSE
     Dosage: REPORTED AS 2DD.
     Route: 065
  12. GRANISETRON [Concomitant]
     Active Substance: GRANISETRON
     Route: 042
     Dates: start: 20071113, end: 20071113

REACTIONS (4)
  - Hyperglycaemia [Recovered/Resolved]
  - Asthenia [Recovered/Resolved with Sequelae]
  - Diarrhoea [Recovered/Resolved]
  - Pyrexia [Recovered/Resolved]

NARRATIVE: CASE EVENT DATE: 20071011
